FAERS Safety Report 4618365-4 (Version None)
Quarter: 2005Q1

REPORT INFORMATION
  Report Type: 
  Country: None (occurrence: None)
  Receive Date: 20050323
  Receipt Date: 20050318
  Transmission Date: 20050727
  Serious: Yes (Hospitalization)
  Sender: FDA-Public Use
  Company Number: K200301324

PATIENT
  Age: 86 Year
  Sex: Female

DRUGS (12)
  1. ALTACE [Suspect]
     Dosage: 2.5 MG, QD, ORAL
     Route: 048
     Dates: start: 20030221, end: 20030520
  2. CETORNAN (ORNITHINE OXOGLURATE) SUSPENSION, 1U [Suspect]
     Dosage: 1 U , QD, ORAL
     Route: 048
     Dates: end: 20030516
  3. RIMIFON [Suspect]
     Dosage: 300 MG, QD,ORAL
     Route: 048
     Dates: start: 20030404, end: 20030516
  4. MYAMBUTOL [Concomitant]
  5. DAFALGAN (PARACETAMOL) CAPSULE [Concomitant]
  6. RIFADINE (RIFAMICIN) CAPSULE [Concomitant]
  7. HEMIGOXINE (DIGOXIN) TABLET [Concomitant]
  8. OMEPRAZOLE [Concomitant]
  9. PRIMPERAN TAB [Concomitant]
  10. VITAMIN B1 AND B6 (PYRIDOXINE THIAMINE) [Concomitant]
  11. XANAX [Concomitant]
  12. STILNOX (ZOLPIDEM) [Concomitant]

REACTIONS (6)
  - ALANINE AMINOTRANSFERASE INCREASED [None]
  - ASPARTATE AMINOTRANSFERASE INCREASED [None]
  - BLOOD ALKALINE PHOSPHATASE INCREASED [None]
  - CHOLELITHIASIS [None]
  - GAMMA-GLUTAMYLTRANSFERASE INCREASED [None]
  - JAUNDICE [None]
